FAERS Safety Report 5108641-3 (Version None)
Quarter: 2006Q3

REPORT INFORMATION
  Report Type: 
  Country: None (occurrence: None)
  Receive Date: 20060915
  Receipt Date: 20060830
  Transmission Date: 20061208
  Serious: Yes (Hospitalization)
  Sender: FDA-Public Use
  Company Number: 229413

PATIENT
  Age: 62 Year
  Sex: Female
  Weight: 63 kg

DRUGS (2)
  1. HERCEPTIN [Suspect]
     Indication: BREAST CANCER
     Dosage: 250 MG, INTRAVENOUS
     Route: 042
     Dates: start: 20060706
  2. PACLITAXEL [Concomitant]

REACTIONS (1)
  - ANAPHYLACTOID REACTION [None]
